FAERS Safety Report 21672965 (Version 1)
Quarter: 2022Q4

REPORT INFORMATION
  Report Type: Report from Study
  Country: CA (occurrence: CA)
  Receive Date: 20221202
  Receipt Date: 20221202
  Transmission Date: 20230113
  Serious: Yes (Other)
  Sender: FDA-Public Use
  Company Number: CA-BAUSCH-BL-2022-025824

PATIENT
  Age: 60 Year
  Sex: Female

DRUGS (4)
  1. CONTRAVE [Suspect]
     Active Substance: BUPROPION HYDROCHLORIDE\NALTREXONE HYDROCHLORIDE
     Indication: Weight control
     Dosage: 90/8 MG, 1 TAB/DAY
     Route: 048
     Dates: start: 2021, end: 2021
  2. CONTRAVE [Suspect]
     Active Substance: BUPROPION HYDROCHLORIDE\NALTREXONE HYDROCHLORIDE
     Dosage: 90/8 MG, 1TAB QAM, 1TAB QPM
     Route: 048
     Dates: start: 202105
  3. INSULIN NOS [Concomitant]
     Active Substance: INSULIN NOS
     Indication: Diabetes mellitus
     Dosage: UNK
     Dates: end: 202111
  4. METFORMIN [Concomitant]
     Active Substance: METFORMIN HYDROCHLORIDE
     Indication: Diabetes mellitus
     Dosage: UNK

REACTIONS (5)
  - Ligament rupture [Not Recovered/Not Resolved]
  - Ankle fracture [Not Recovered/Not Resolved]
  - Hunger [Not Recovered/Not Resolved]
  - Therapeutic response unexpected [Unknown]
  - Drug titration error [Unknown]

NARRATIVE: CASE EVENT DATE: 20210501
